FAERS Safety Report 5697166-2 (Version None)
Quarter: 2008Q2

REPORT INFORMATION
  Report Type: 
  Country: None (occurrence: None)
  Receive Date: 20080408
  Receipt Date: 20070622
  Transmission Date: 20081010
  Serious: No
  Sender: FDA-Public Use
  Company Number: US-BAYER-US-2007-023440

PATIENT
  Age: 31 Year
  Weight: 76 kg

DRUGS (3)
  1. YASMIN [Suspect]
     Indication: CONTRACEPTION
     Route: 048
     Dates: start: 20060101
  2. LAMICTAL ^BURROUGHS WELLCOME^ [Concomitant]
  3. FOLIC ACID [Concomitant]

REACTIONS (2)
  - RASH PRURITIC [None]
  - SINUSITIS [None]
